FAERS Safety Report 6141637-1 (Version None)
Quarter: 2009Q2

REPORT INFORMATION
  Report Type: 
  Country: None (occurrence: None)
  Receive Date: 20090402
  Receipt Date: 20090327
  Transmission Date: 20091009
  Serious: Yes (Other)
  Sender: FDA-Public Use
  Company Number: B0567198A

PATIENT
  Sex: Female

DRUGS (1)
  1. RELENZA [Suspect]
     Route: 055
     Dates: start: 20090301

REACTIONS (6)
  - ALTERED STATE OF CONSCIOUSNESS [None]
  - DEPRESSED LEVEL OF CONSCIOUSNESS [None]
  - DYSPHONIA [None]
  - EYELID DISORDER [None]
  - LOSS OF CONSCIOUSNESS [None]
  - PERIPHERAL COLDNESS [None]
